FAERS Safety Report 20191369 (Version 1)
Quarter: 2021Q4

REPORT INFORMATION
  Report Type: Spontaneous
  Country: US (occurrence: US)
  Receive Date: 20211216
  Receipt Date: 20211216
  Transmission Date: 20220303
  Serious: No
  Sender: FDA-Public Use
  Company Number: US-ENDO PHARMACEUTICALS INC-2021-001617

PATIENT
  Sex: Male

DRUGS (9)
  1. XIAFLEX [Suspect]
     Active Substance: COLLAGENASE CLOSTRIDIUM HISTOLYTICUM
     Indication: Peyronie^s disease
     Dosage: UNK UNKNOWN, UNKNOWN; CYCLE ONE INJECTION ONE
     Route: 026
     Dates: start: 201910
  2. XIAFLEX [Suspect]
     Active Substance: COLLAGENASE CLOSTRIDIUM HISTOLYTICUM
     Dosage: UNK UNKNOWN, UNKNOWN; CYCLE ONE INJECTION TWO
     Route: 026
     Dates: start: 201910
  3. XIAFLEX [Suspect]
     Active Substance: COLLAGENASE CLOSTRIDIUM HISTOLYTICUM
     Dosage: UNK UNKNOWN, UNKNOWN; CYCLW TWO, INJECTION TWO
     Route: 026
     Dates: start: 201910
  4. XIAFLEX [Suspect]
     Active Substance: COLLAGENASE CLOSTRIDIUM HISTOLYTICUM
     Dosage: UNK UNKNOWN, UNKNOWN; CYCLE TWO, INJECTION TWO
     Route: 026
     Dates: start: 201910
  5. XIAFLEX [Suspect]
     Active Substance: COLLAGENASE CLOSTRIDIUM HISTOLYTICUM
     Dosage: UNK UNKNOWN, UNKNOWN; ONE INJECTION
     Route: 026
     Dates: start: 20200716
  6. XIAFLEX [Suspect]
     Active Substance: COLLAGENASE CLOSTRIDIUM HISTOLYTICUM
     Dosage: UNK UNKNOWN, UNKNOWN; CYCLE FOUR, INJECTION ONE
     Dates: start: 20200827
  7. XIAFLEX [Suspect]
     Active Substance: COLLAGENASE CLOSTRIDIUM HISTOLYTICUM
     Dosage: UNK UNKNOWN, UNKNOWN; FOURTH CYCLE, SECOND INJECTION
     Route: 026
     Dates: start: 20210903
  8. XIAFLEX [Suspect]
     Active Substance: COLLAGENASE CLOSTRIDIUM HISTOLYTICUM
     Dosage: UNK UNKNOWN, UNKNOWN; FIFTH CYCLE, INJECTION ONE
     Route: 026
     Dates: start: 20201022
  9. XIAFLEX [Suspect]
     Active Substance: COLLAGENASE CLOSTRIDIUM HISTOLYTICUM
     Dosage: UNK UNKNOWN, UNKNOWN; CYCLE FIVE, SECOND INJECTION
     Route: 026
     Dates: start: 20201029

REACTIONS (5)
  - Inappropriate schedule of product administration [Unknown]
  - Intentional product use issue [Unknown]
  - Product administration interrupted [Recovered/Resolved]
  - Cough [Unknown]
  - Drug ineffective [Unknown]

NARRATIVE: CASE EVENT DATE: 20200101
